FAERS Safety Report 11951354 (Version 1)
Quarter: 2016Q1

REPORT INFORMATION
  Report Type: Spontaneous
  Country: US (occurrence: None)
  Receive Date: 20160122
  Receipt Date: 20160122
  Transmission Date: 20160526
  Serious: Yes (Hospitalization)
  Sender: FDA-Public Use
  Company Number: None

PATIENT
  Age: 45 Year
  Sex: Male
  Weight: 81.19 kg

DRUGS (15)
  1. TRAZODONE [Concomitant]
     Active Substance: TRAZODONE HYDROCHLORIDE
  2. NICOTINE GUM [Concomitant]
     Active Substance: NICOTINE
  3. PERPEHANZINE 4 MG SANDOZ [Suspect]
     Active Substance: PERPHENAZINE
     Indication: PSYCHOTIC DISORDER
     Route: 048
     Dates: start: 20151020, end: 20151026
  4. DEPAKOTE [Concomitant]
     Active Substance: DIVALPROEX SODIUM
  5. LACTULOSE. [Concomitant]
     Active Substance: LACTULOSE
  6. AMOXIDILLIN [Concomitant]
  7. PERPEHANZINE 16 MG SANDOZ [Suspect]
     Active Substance: PERPHENAZINE
     Indication: PSYCHOTIC DISORDER
     Route: 048
     Dates: start: 20151015, end: 20151027
  8. CLONIDINE. [Concomitant]
     Active Substance: CLONIDINE
  9. TERBINAFINE 1% CREAM [Concomitant]
  10. OLANZAPINE. [Concomitant]
     Active Substance: OLANZAPINE
  11. MYLANTA [Concomitant]
     Active Substance: ALUMINUM HYDROXIDE\DIMETHICONE\MAGNESIUM HYDROXIDE
  12. CARBAMIDE PEROXIDE OTIC [Concomitant]
  13. LISINOPRIL. [Concomitant]
     Active Substance: LISINOPRIL
  14. METFORMIN [Concomitant]
     Active Substance: METFORMIN HYDROCHLORIDE
  15. IBUPROFEN 600 MG [Concomitant]

REACTIONS (4)
  - Dehydration [None]
  - Hyponatraemia [None]
  - Hypotension [None]
  - Bradycardia [None]

NARRATIVE: CASE EVENT DATE: 20151026
